FAERS Safety Report 20478894 (Version 4)
Quarter: 2022Q2

REPORT INFORMATION
  Report Type: Spontaneous
  Country: PL (occurrence: PL)
  Receive Date: 20220216
  Receipt Date: 20220603
  Transmission Date: 20220721
  Serious: Yes (Hospitalization, Disabling, Other)
  Sender: FDA-Public Use
  Company Number: None

PATIENT
  Age: 83 Year
  Sex: Female
  Weight: 91 kg

DRUGS (27)
  1. ALLOPURINOL [Interacting]
     Active Substance: ALLOPURINOL
     Indication: Product used for unknown indication
     Dosage: 100 MG, QD/1-0-0
     Route: 048
  2. ATORVASTATIN [Interacting]
     Active Substance: ATORVASTATIN
     Indication: Product used for unknown indication
     Dosage: 20 MG, QD/0-0-1
  3. BETAHISTINE [Interacting]
     Active Substance: BETAHISTINE
     Indication: Product used for unknown indication
     Dosage: 24 MG, QD/0-1-0
  4. FUROSEMIDE [Interacting]
     Active Substance: FUROSEMIDE
     Indication: Product used for unknown indication
     Dosage: 40 MILLIGRAM, 3 TABLETS EVERY 2 DAYS
  5. ISOSORBIDE MONONITRATE [Interacting]
     Active Substance: ISOSORBIDE MONONITRATE
     Indication: Product used for unknown indication
     Dosage: DURULE, 50 MILLIGRAM, AS NEEDED, AVERAGE 1 -2 X/24
     Route: 048
  6. LEVOTHYROXINE [Interacting]
     Active Substance: LEVOTHYROXINE
     Indication: Product used for unknown indication
     Dosage: 100 UG, QD/1-0-0
  7. METOCLOPRAMIDE [Interacting]
     Active Substance: METOCLOPRAMIDE
     Indication: Constipation
     Dosage: 10 MILLIGRAM, 2 TABLETS AS NEEDED, IN CASE OF CONSTIPATION, BUT FOR MANY?MONTHS
  8. ACETAMINOPHEN [Interacting]
     Active Substance: ACETAMINOPHEN
     Indication: Product used for unknown indication
     Dosage: 500 MG, QD/0-0-1
  9. RAMIPRIL [Interacting]
     Active Substance: RAMIPRIL
     Indication: Cardiac failure
     Dosage: 5 MG, QD/1-0-0
     Route: 048
  10. SPIRONOLACTONE [Interacting]
     Active Substance: SPIRONOLACTONE
     Indication: Product used for unknown indication
     Dosage: 100 MG, QD/0-1-0
  11. HYDROCHLOROTHIAZIDE [Interacting]
     Active Substance: HYDROCHLOROTHIAZIDE
     Indication: Product used for unknown indication
     Dosage: 25 MG, QD/1-0-0
  12. ALPRAZOLAM [Interacting]
     Active Substance: ALPRAZOLAM
     Indication: Product used for unknown indication
     Dosage: 2 DF, QD/0,5 MG, AD HOC, USUALLY
  13. CITALOPRAM [Interacting]
     Active Substance: CITALOPRAM HYDROBROMIDE
     Indication: Depression
     Dosage: 40 MG, QD/1-0-0/DRUG LIST AT THE ADMISSION
  14. DABIGATRAN ETEXILATE [Interacting]
     Active Substance: DABIGATRAN ETEXILATE
     Indication: Product used for unknown indication
     Dosage: 110 MG, BID/DRUG LIST AT THE ADMISSION
  15. GLICLAZIDE [Interacting]
     Active Substance: GLICLAZIDE
     Indication: Product used for unknown indication
     Dosage: 60 MG, TID/1-1-1
  16. HYDROXYZINE [Interacting]
     Active Substance: HYDROXYZINE HYDROCHLORIDE
     Indication: Product used for unknown indication
     Dosage: 25 MILLIGRAM, AS NEEDED, AVERAGE 2 X /24 H
  17. METOPROLOL FUMARATE [Interacting]
     Active Substance: METOPROLOL FUMARATE
     Indication: Hypertension
     Dosage: 50 MG, BID/1-0-1/2
     Route: 048
  18. OMEPRAZOLE [Interacting]
     Active Substance: OMEPRAZOLE
     Indication: Product used for unknown indication
     Dosage: 20 MG, BID/1-1-0
     Route: 048
  19. POTASSIUM CHLORIDE [Interacting]
     Active Substance: POTASSIUM CHLORIDE
     Indication: Product used for unknown indication
     Dosage: 1 DF EVERY 2 DAYS/1 DF EVERY 2 DAYS/391 MG K+
  20. ALBUTEROL [Interacting]
     Active Substance: ALBUTEROL
     Indication: Product used for unknown indication
     Dosage: 100 PICOGRAM, AS NEEDED
  21. TRAMADOL [Interacting]
     Active Substance: TRAMADOL
     Indication: Pain
     Dosage: AS NEEDED 2 TABLETS
  22. ZOLPIDEM [Interacting]
     Active Substance: ZOLPIDEM TARTRATE
     Indication: Product used for unknown indication
     Dosage: 10 MG, QD (0-0-1)
  23. NIKETHAMIDE [Interacting]
     Active Substance: NIKETHAMIDE
     Indication: Product used for unknown indication
     Dosage: 1,5 + 125 MG, AD HOC
  24. TORSEMIDE [Concomitant]
     Active Substance: TORSEMIDE
     Indication: Product used for unknown indication
     Dosage: 5 MG, QD/1-0-0
  25. METFORMIN [Concomitant]
     Active Substance: METFORMIN HYDROCHLORIDE
     Indication: Type 2 diabetes mellitus
  26. VORTIOXETINE [Concomitant]
     Active Substance: VORTIOXETINE
     Indication: Product used for unknown indication
     Dosage: 10 MG, QD/0-0-1
  27. QUETIAPINE [Concomitant]
     Active Substance: QUETIAPINE
     Indication: Product used for unknown indication
     Dosage: 25 MG, QD

REACTIONS (40)
  - Dysuria [Unknown]
  - Cognitive disorder [Unknown]
  - Atrioventricular block first degree [Unknown]
  - Gastric polyps [Unknown]
  - Hyperkalaemia [Unknown]
  - Hiatus hernia [Unknown]
  - Drug interaction [Unknown]
  - Muscle rigidity [Unknown]
  - Melaena [Unknown]
  - Constipation [Unknown]
  - Fall [Unknown]
  - Hypotension [Recovering/Resolving]
  - Drug ineffective [Unknown]
  - Hyponatraemia [Unknown]
  - Hypoglycaemia [Recovered/Resolved]
  - Medication error [Unknown]
  - Stupor [Unknown]
  - Product use issue [Unknown]
  - Motor dysfunction [Recovering/Resolving]
  - Pruritus [Unknown]
  - Dementia [Unknown]
  - Bradykinesia [Unknown]
  - Abdominal pain upper [Unknown]
  - Peripheral circulatory failure [Unknown]
  - Urinary retention [Unknown]
  - Diabetes mellitus inadequate control [Unknown]
  - Sedation [Recovering/Resolving]
  - Cognitive disorder [Unknown]
  - Parkinsonism [Unknown]
  - Drug dependence [Unknown]
  - Arthralgia [Unknown]
  - Depression [Unknown]
  - Dizziness [Recovering/Resolving]
  - Multiple drug therapy [Unknown]
  - Nausea [Unknown]
  - Osteoporosis [Unknown]
  - Insomnia [Unknown]
  - Syncope [Recovering/Resolving]
  - Mobility decreased [Recovering/Resolving]
  - Incorrect product administration duration [Unknown]
